FAERS Safety Report 21761111 (Version 1)
Quarter: 2022Q4

REPORT INFORMATION
  Report Type: Spontaneous
  Country: JP (occurrence: JP)
  Receive Date: 20221221
  Receipt Date: 20221221
  Transmission Date: 20230113
  Serious: Yes (Hospitalization, Other)
  Sender: FDA-Public Use
  Company Number: JP-PFIZER INC-PV202200125492

PATIENT
  Age: 66 Year
  Sex: Female
  Weight: 48.1 kg

DRUGS (7)
  1. XELJANZ [Suspect]
     Active Substance: TOFACITINIB CITRATE
     Indication: Rheumatoid arthritis
     Dosage: 5 MG, DAILY
     Route: 048
     Dates: start: 201801, end: 201806
  2. XELJANZ [Suspect]
     Active Substance: TOFACITINIB CITRATE
     Dosage: 10 MG, DAILY
     Route: 048
     Dates: start: 201806
  3. XELJANZ [Suspect]
     Active Substance: TOFACITINIB CITRATE
     Dosage: 10 MG, DAILY
     Route: 048
     Dates: start: 202204, end: 20221007
  4. ELDECALCITOL [Concomitant]
     Active Substance: ELDECALCITOL
     Route: 048
  5. CALONAL [Concomitant]
     Active Substance: ACETAMINOPHEN
     Route: 048
  6. GLUTAMINE\SODIUM DECAHYDROAZULENE-1-SULFONATE [Concomitant]
     Active Substance: GLUTAMINE\SODIUM DECAHYDROAZULENE-1-SULFONATE
     Route: 048
  7. SODIUM PICOSULFATE [Concomitant]
     Active Substance: SODIUM PICOSULFATE
     Route: 048

REACTIONS (2)
  - Neuroendocrine carcinoma of the skin [Recovering/Resolving]
  - Arthralgia [Unknown]

NARRATIVE: CASE EVENT DATE: 20220801
